FAERS Safety Report 12933660 (Version 1)
Quarter: 2016Q4

REPORT INFORMATION
  Report Type: Spontaneous
  Country: FR (occurrence: FR)
  Receive Date: 20161111
  Receipt Date: 20161111
  Transmission Date: 20170207
  Serious: Yes (Hospitalization)
  Sender: FDA-Public Use
  Company Number: FR-SA-2016SA203764

PATIENT
  Age: 53 Year
  Sex: Female

DRUGS (10)
  1. PREGABALIN. [Concomitant]
     Active Substance: PREGABALIN
     Dosage: MORNING/AFTERNOON AND EVENING.
     Route: 048
  2. RACECADOTRIL [Concomitant]
     Active Substance: RACECADOTRIL
     Dosage: 1 MORNING/1 NOON AND 1 EVENING.
     Route: 048
  3. ESOMEPRAZOLE [Concomitant]
     Active Substance: ESOMEPRAZOLE
     Route: 065
  4. ELVORINE [Concomitant]
     Active Substance: LEUCOVORIN CALCIUM
     Route: 042
  5. DIFFU K [Concomitant]
     Active Substance: POTASSIUM CHLORIDE
     Dosage: 1 MORNING/ 1 NOON AND 1 EVENING.
     Route: 048
  6. SPASFON [Concomitant]
     Active Substance: PHLOROGLUCINOL
     Route: 065
  7. FLUCONAZOLE. [Concomitant]
     Active Substance: FLUCONAZOLE
     Route: 048
  8. TAXOTERE [Suspect]
     Active Substance: DOCETAXEL
     Indication: BREAST CANCER
     Route: 042
     Dates: start: 201508, end: 201508
  9. ZOPHREN [Concomitant]
     Active Substance: ONDANSETRON
     Route: 065
  10. NEBIVOLOL. [Concomitant]
     Active Substance: NEBIVOLOL
     Route: 048

REACTIONS (5)
  - Supraventricular tachycardia [Recovered/Resolved]
  - Enterocolitis [Recovered/Resolved]
  - Dehydration [Recovered/Resolved]
  - Febrile bone marrow aplasia [Recovered/Resolved]
  - Thrombocytopenia [Recovered/Resolved]

NARRATIVE: CASE EVENT DATE: 20150810
